FAERS Safety Report 20975631 (Version 1)
Quarter: 2022Q2

REPORT INFORMATION
  Report Type: Report from Study
  Country: US (occurrence: US)
  Receive Date: 20220617
  Receipt Date: 20220617
  Transmission Date: 20220721
  Serious: Yes (Death, Other)
  Sender: FDA-Public Use
  Company Number: US-PFIZER INC-202200840746

PATIENT

DRUGS (2)
  1. CYTARABINE [Suspect]
     Active Substance: CYTARABINE
     Indication: Leukaemia
     Dosage: 100 MG/M2, CYCLIC (7-DAY CONTINUOUS INFUSION AT 100MG/M2 PER DAY)
  2. MITOXANTRONE [Suspect]
     Active Substance: MITOXANTRONE HYDROCHLORIDE
     Indication: Leukaemia
     Dosage: UNK, CYCLIC (OVER 30 MIN IN 100CC OF D5W ON DAYS 1, 2, AND 3)

REACTIONS (3)
  - Pancytopenia [Fatal]
  - Haemorrhage [Fatal]
  - Pyrexia [Fatal]
